FAERS Safety Report 25414166 (Version 3)
Quarter: 2025Q4

REPORT INFORMATION
  Report Type: Spontaneous
  Country: US (occurrence: US)
  Receive Date: 20250609
  Receipt Date: 20251121
  Transmission Date: 20260118
  Serious: No
  Sender: BRISTOL-MYERS SQUIBB COMPANY
  Company Number: US-BRISTOL-MYERS SQUIBB COMPANY-2025-081804

PATIENT
  Age: 73 Year
  Sex: Male

DRUGS (2)
  1. LENALIDOMIDE [Suspect]
     Active Substance: LENALIDOMIDE
     Indication: Plasma cell myeloma
     Dosage: FREQUENCY: FOR 28 DAYS CALL FOR A REFILL WHEN?YOU HAVE 5 CAPSULES LEFT
     Route: 048
  2. LENALIDOMIDE [Suspect]
     Active Substance: LENALIDOMIDE
     Dosage: TAKE 1 CAPSULE BY MOUTH IN THE MORNING FOR 28 DAYS. CALL FOR REFILL WHEN YOU HAVE 5 CAPS LEFT
     Route: 048

REACTIONS (3)
  - Dry skin [Unknown]
  - Product dose omission issue [Unknown]
  - Full blood count decreased [Not Recovered/Not Resolved]
